FAERS Safety Report 20404447 (Version 2)
Quarter: 2023Q1

REPORT INFORMATION
  Report Type: Report from Study
  Country: US (occurrence: US)
  Receive Date: 20220131
  Receipt Date: 20230103
  Transmission Date: 20230418
  Serious: Yes (Hospitalization)
  Sender: FDA-Public Use
  Company Number: US-BAUSCH-BL-2022-002736

PATIENT
  Age: 70 Year
  Sex: Female
  Weight: 77.452 kg

DRUGS (21)
  1. XIFAXAN [Suspect]
     Active Substance: RIFAXIMIN
     Indication: Hepatic encephalopathy
     Route: 048
  2. FLUTICASONE PROPIONATE [Concomitant]
     Active Substance: FLUTICASONE PROPIONATE
     Indication: Product used for unknown indication
     Dosage: FLUTICASONE PROPIONATE 50 MCG/ACT SUSPENSION 1 SPRAY IN EACH NOSTRIL NASALLY ONCE A DAY
     Route: 045
  3. ROSUVASTATIN CALCIUM [Concomitant]
     Active Substance: ROSUVASTATIN CALCIUM
     Indication: Arteriosclerosis coronary artery
     Route: 048
  4. ALPRAZOLAM [Concomitant]
     Active Substance: ALPRAZOLAM
     Indication: Product used for unknown indication
     Dosage: AT BEDTIME
     Route: 048
  5. ASPIRIN [Concomitant]
     Active Substance: ASPIRIN
     Indication: Arteriosclerosis coronary artery
     Dosage: ASPIRIN ADULT LOW STRENGTH
     Route: 048
  6. BREO ELLIPTA [Concomitant]
     Active Substance: FLUTICASONE FUROATE\VILANTEROL TRIFENATATE
     Indication: Product used for unknown indication
     Dosage: 200-25 MCG/INH, AEROSOL POWDER BREATH ACTIVATED 1 PUFF INHALATION ONCE A DAY
     Route: 055
  7. CLOPIDOGREL BISULFATE [Concomitant]
     Active Substance: CLOPIDOGREL BISULFATE
     Indication: Product used for unknown indication
     Route: 048
  8. LANTUS [Concomitant]
     Active Substance: INSULIN GLARGINE
     Indication: Product used for unknown indication
     Dosage: 100 UNIT/ML SOLUTION SUBCUTANEOUS , NOTES: 15 UNITS Q AM, 15 OR 20 UNITS Q PM.
     Route: 058
  9. LEVOTHYROXINE SODIUM [Concomitant]
     Active Substance: LEVOTHYROXINE SODIUM
     Indication: Product used for unknown indication
     Dosage: 1 TABLET ON AN EMPTY STOMACH IN THE MORNING ORALLY ONCE A DAY
     Route: 048
  10. NEURONTIN [GABAPENTIN] [Concomitant]
     Indication: Product used for unknown indication
     Route: 048
  11. MAGOX [Concomitant]
     Indication: Hepatic cirrhosis
     Dosage: MAG OX 400 400 (241.3) MG TABLET 1-4 TABS DAILY
     Route: 065
  12. NOVOLOG [Concomitant]
     Active Substance: INSULIN ASPART
     Indication: Product used for unknown indication
     Dosage: NOVOLOG FLEXPEN 100 UNIT/ML SOLUTION PEN-INJECTOR SUBCUTANEOUS , NOTES: SLIDING SCALE
     Route: 058
  13. ONDANSETRON [Concomitant]
     Active Substance: ONDANSETRON
     Indication: Product used for unknown indication
     Dosage: TABLET DISPERSIBLE 1 TABLET ON THE TONGUE AND ALLOW TO DISSOLVE ORALLY EVEN^ 6 HRS PRN
     Route: 048
  14. ALLOPURINOL [Concomitant]
     Active Substance: ALLOPURINOL
     Indication: Product used for unknown indication
     Route: 048
  15. LASIX [Concomitant]
     Active Substance: FUROSEMIDE
     Indication: Ascites
     Dosage: 1 TABLET ORALLY BID ON NON-DIALYSIS DAYS
     Route: 048
  16. VITAMIN B6 [Concomitant]
     Active Substance: PYRIDOXINE HYDROCHLORIDE
     Indication: Anaemia
     Route: 065
  17. EPOETIN ALFA [Concomitant]
     Active Substance: ERYTHROPOIETIN
     Indication: Anaemia
     Dosage: EPOETIN ALFA 20000 UNIT/ML SOLUTION 5000 UNITS INJECTION 3X/WEEK AT DIALYSIS
     Route: 042
  18. LACTULOSE [Concomitant]
     Active Substance: LACTULOSE
     Indication: Hepatic encephalopathy
     Dosage: 20 GM/30ML SOLUTION 30 ML ORALLY THREE TIMES DAILY
     Route: 048
  19. CARVEDILOL [Concomitant]
     Active Substance: CARVEDILOL
     Indication: Product used for unknown indication
     Dosage: 1 TABLET WITH FOOD ORALLY
     Route: 048
  20. ERGOCALCIFEROL [Concomitant]
     Active Substance: ERGOCALCIFEROL
     Indication: Hepatic cirrhosis
     Dosage: 1.25 MG (50000 UT)
     Route: 048
  21. VITAMIN B12 [Concomitant]
     Active Substance: CYANOCOBALAMIN
     Indication: Anaemia
     Dosage: COMPLIANCE INJECTION
     Route: 065

REACTIONS (7)
  - Bronchitis [Unknown]
  - Weight decreased [Unknown]
  - Post procedural fistula [Unknown]
  - Oedema peripheral [Unknown]
  - Contusion [Unknown]
  - Puncture site haematoma [Unknown]
  - Mobility decreased [Unknown]

NARRATIVE: CASE EVENT DATE: 20191201
